FAERS Safety Report 22382074 (Version 1)
Quarter: 2023Q2

REPORT INFORMATION
  Report Type: Spontaneous
  Country: CH (occurrence: CH)
  Receive Date: 20230530
  Receipt Date: 20230530
  Transmission Date: 20230722
  Serious: Yes (Other)
  Sender: FDA-Public Use
  Company Number: CH-SA-2023SA163099

PATIENT
  Age: 41 Year
  Sex: Male

DRUGS (6)
  1. PRALUENT [Suspect]
     Active Substance: ALIROCUMAB
     Indication: Dyslipidaemia
     Dosage: 75 MG
     Route: 058
     Dates: start: 2022
  2. PRALUENT [Suspect]
     Active Substance: ALIROCUMAB
     Dosage: 150 MG, QOW
     Route: 058
     Dates: start: 20230412, end: 20230426
  3. ASPIRIN [Concomitant]
     Active Substance: ASPIRIN
     Dosage: 100 MG, QD
  4. LINOSPRIL [Concomitant]
     Dosage: 5 MG, QD
  5. CHLORPROTHIXENE [Concomitant]
     Active Substance: CHLORPROTHIXENE
     Dosage: 30 MG, QD (0-0-2-0)
  6. VALPROATE [Concomitant]
     Active Substance: VALPROIC ACID
     Dosage: 750 MG, QD (1.5-0-0-0)

REACTIONS (4)
  - Dyskinesia [Not Recovered/Not Resolved]
  - Rash pruritic [Recovered/Resolved]
  - Tachycardia [Not Recovered/Not Resolved]
  - Insomnia [Not Recovered/Not Resolved]

NARRATIVE: CASE EVENT DATE: 20230413
